FAERS Safety Report 16446733 (Version 10)
Quarter: 2020Q1

REPORT INFORMATION
  Report Type: Spontaneous
  Country: US (occurrence: US)
  Receive Date: 20190618
  Receipt Date: 20200325
  Transmission Date: 20200409
  Serious: Yes (Hospitalization)
  Sender: FDA-Public Use
  Company Number: US-ACTELION-A-NJ2019-191773

PATIENT
  Age: 64 Year
  Sex: Female
  Weight: 73.47 kg

DRUGS (16)
  1. ALBUTEROL HFA [Concomitant]
     Active Substance: ALBUTEROL SULFATE
  2. SILDENAFIL. [Concomitant]
     Active Substance: SILDENAFIL
  3. QUESTRAN [Concomitant]
     Active Substance: CHOLESTYRAMINE
  4. FIDAXOMICIN [Concomitant]
     Active Substance: FIDAXOMICIN
  5. VELETRI [Suspect]
     Active Substance: EPOPROSTENOL
     Indication: PULMONARY HYPERTENSION
     Dosage: 30 NG/KG, PER MIN
     Route: 042
  6. VELETRI [Suspect]
     Active Substance: EPOPROSTENOL
     Dosage: 20 NG/KG, PER MIN
     Route: 042
  7. OPSUMIT [Suspect]
     Active Substance: MACITENTAN
     Indication: PULMONARY HYPERTENSION
     Dosage: 10 MG, QD
     Route: 048
     Dates: start: 201608
  8. SPIRONOLACTONE. [Concomitant]
     Active Substance: SPIRONOLACTONE
  9. TORSEMIDE. [Concomitant]
     Active Substance: TORSEMIDE
  10. LEVOTHYROXINE. [Concomitant]
     Active Substance: LEVOTHYROXINE
  11. ALLOPURINOL. [Concomitant]
     Active Substance: ALLOPURINOL
  12. FAMOTIDINE. [Concomitant]
     Active Substance: FAMOTIDINE
  13. SUCRALFATE. [Concomitant]
     Active Substance: SUCRALFATE
  14. ANTACID PLUS ANTI-GAS [Concomitant]
  15. BENADRYL [Concomitant]
     Active Substance: DIPHENHYDRAMINE HYDROCHLORIDE
  16. COLCHICINE. [Concomitant]
     Active Substance: COLCHICINE

REACTIONS (22)
  - Clostridium difficile infection [Not Recovered/Not Resolved]
  - Diarrhoea [Not Recovered/Not Resolved]
  - Abdominal pain lower [Unknown]
  - Device breakage [Recovered/Resolved]
  - Laryngitis [Unknown]
  - Colitis [Unknown]
  - Device use issue [Unknown]
  - Unevaluable event [Unknown]
  - Dizziness [Unknown]
  - Sepsis [Unknown]
  - Loss of consciousness [Unknown]
  - Malaise [Unknown]
  - Organ failure [Unknown]
  - Gastrointestinal infection [Unknown]
  - Hypovolaemic shock [Recovered/Resolved]
  - Hypotension [Unknown]
  - Infection [Unknown]
  - Diverticulitis [Unknown]
  - Syncope [Unknown]
  - Headache [Unknown]
  - Catheter management [Unknown]
  - Dysphonia [Unknown]

NARRATIVE: CASE EVENT DATE: 20190608
